FAERS Safety Report 12911467 (Version 1)
Quarter: 2016Q4

REPORT INFORMATION
  Report Type: Spontaneous
  Country: US (occurrence: US)
  Receive Date: 20161102
  Receipt Date: 20161102
  Transmission Date: 20170207
  Serious: Yes (Other)
  Sender: FDA-Public Use
  Company Number: None

PATIENT
  Age: 59 Year
  Sex: Female
  Weight: 108 kg

DRUGS (5)
  1. CALCIUM [Concomitant]
     Active Substance: CALCIUM
  2. ALENDRONATE 70 MG SUB FOR FOSAMAX VIRTUS PHARMACEUTICALS [Suspect]
     Active Substance: ALENDRONATE SODIUM
     Indication: OSTEOPOROSIS
     Dosage: ?          QUANTITY:1 TABLET(S);OTHER FREQUENCY:WEEKLY;?
     Route: 048
     Dates: start: 20160810, end: 20161018
  3. ALEVE [Concomitant]
     Active Substance: NAPROXEN SODIUM
  4. DAILY VITAMIN [Concomitant]
     Active Substance: VITAMINS
  5. VITAMIN D3 [Concomitant]
     Active Substance: CHOLECALCIFEROL

REACTIONS (6)
  - Abasia [None]
  - Musculoskeletal discomfort [None]
  - Joint stiffness [None]
  - Gait disturbance [None]
  - Arthralgia [None]
  - Dysstasia [None]

NARRATIVE: CASE EVENT DATE: 20160826
